FAERS Safety Report 4786144-3 (Version None)
Quarter: 2005Q3

REPORT INFORMATION
  Report Type: 
  Country: None (occurrence: None)
  Receive Date: 20050929
  Receipt Date: 20050922
  Transmission Date: 20060218
  Serious: Yes (Other)
  Sender: FDA-Public Use
  Company Number: 8012163

PATIENT
  Age: 11 Year
  Sex: Male
  Weight: 44.4 kg

DRUGS (4)
  1. KEPPRA [Suspect]
     Indication: COMPLEX PARTIAL SEIZURES
     Dosage: 250 MG /D PO
     Route: 048
     Dates: start: 20050726, end: 20050730
  2. KEPPRA [Suspect]
     Indication: COMPLEX PARTIAL SEIZURES
     Dosage: 750 MG /D PO
     Route: 048
     Dates: start: 20050806, end: 20050810
  3. KEPPRA [Suspect]
     Indication: COMPLEX PARTIAL SEIZURES
     Dosage: 500 MG /D PO
     Route: 048
     Dates: start: 20050811
  4. PAMELOR [Concomitant]

REACTIONS (2)
  - HALLUCINATION, AUDITORY [None]
  - HOMICIDAL IDEATION [None]
